FAERS Safety Report 4765584-2 (Version None)
Quarter: 2005Q3

REPORT INFORMATION
  Report Type: 
  Country: None (occurrence: None)
  Receive Date: 20050906
  Receipt Date: 20050826
  Transmission Date: 20060218
  Serious: Yes (Hospitalization)
  Sender: FDA-Public Use
  Company Number: 2005117854

PATIENT
  Age: 83 Year
  Sex: Male

DRUGS (2)
  1. ZOLOFT [Suspect]
     Indication: DEPRESSION
     Dosage: 50 MG (50 MG, 1 IN 1 D), UNKNOWN
     Route: 065
     Dates: start: 20050301
  2. FLUINDIONE (FLUINDIONE) [Concomitant]

REACTIONS (11)
  - DISORIENTATION [None]
  - FEELING ABNORMAL [None]
  - HYPONATRAEMIA [None]
  - INTERNATIONAL NORMALISED RATIO ABNORMAL [None]
  - OEDEMA [None]
  - PROTHROMBIN LEVEL ABNORMAL [None]
  - PULMONARY OEDEMA [None]
  - RASH [None]
  - RENAL FAILURE [None]
  - SKIN DISORDER [None]
  - WEIGHT DECREASED [None]
